FAERS Safety Report 10242143 (Version 1)
Quarter: 2014Q2

REPORT INFORMATION
  Report Type: Spontaneous
  Country: BR (occurrence: None)
  Receive Date: 20140613
  Receipt Date: 20140613
  Transmission Date: 20141212
  Serious: Yes (Other)
  Sender: FDA-Public Use
  Company Number: 2014-19698

PATIENT
  Age: 86 Year
  Sex: Male

DRUGS (1)
  1. EYLEA (AFLIBERCEPT) INJECTION)AFLIBERCEPT) [Suspect]
     Route: 031

REACTIONS (3)
  - Retinal haemorrhage [None]
  - Retinal pigment epithelial tear [None]
  - Eye inflammation [None]
